FAERS Safety Report 14171297 (Version 4)
Quarter: 2018Q3

REPORT INFORMATION
  Report Type: Spontaneous
  Country: US (occurrence: US)
  Receive Date: 20171108
  Receipt Date: 20180829
  Transmission Date: 20181010
  Serious: Yes (Other)
  Sender: FDA-Public Use
  Company Number: US-BAYER-2017-215852

PATIENT
  Age: 26 Year
  Sex: Female
  Weight: 77.56 kg

DRUGS (1)
  1. SKYLA [Suspect]
     Active Substance: LEVONORGESTREL
     Indication: CONTRACEPTION
     Dosage: 14 MCG/24HR, CONT
     Route: 015
     Dates: start: 20161031, end: 20170929

REACTIONS (11)
  - Amenorrhoea [Recovered/Resolved]
  - Back pain [Recovered/Resolved]
  - Dysmenorrhoea [None]
  - Menstruation irregular [None]
  - Haemorrhage in pregnancy [None]
  - Genital haemorrhage [None]
  - Abdominal pain lower [None]
  - Pregnancy with contraceptive device [Recovered/Resolved]
  - Drug ineffective [None]
  - Dizziness [Recovered/Resolved]
  - Headache [Recovered/Resolved]

NARRATIVE: CASE EVENT DATE: 201708
